FAERS Safety Report 12736024 (Version 2)
Quarter: 2016Q3

REPORT INFORMATION
  Report Type: Spontaneous
  Country: GB (occurrence: GB)
  Receive Date: 20160913
  Receipt Date: 20160929
  Transmission Date: 20161109
  Serious: Yes (Other)
  Sender: FDA-Public Use
  Company Number: GB-ACCORD-043784

PATIENT
  Age: 66 Year
  Sex: Female
  Weight: 76 kg

DRUGS (3)
  1. ALENDRONATE SODIUM/ALENDRONIC ACID [Concomitant]
     Indication: BONE DENSITY DECREASED
     Dates: start: 2013
  2. AMLODIPINE [Suspect]
     Active Substance: AMLODIPINE BESYLATE
     Indication: HYPERTENSION
     Route: 048
     Dates: start: 201604, end: 20160803
  3. ACETYLSALICYLIC ACID [Concomitant]
     Active Substance: ASPIRIN
     Indication: NEOPLASM PROPHYLAXIS
     Dates: start: 2013

REACTIONS (3)
  - Abnormal sensation in eye [Recovered/Resolved]
  - Angle closure glaucoma [Not Recovered/Not Resolved]
  - Pupil fixed [Unknown]

NARRATIVE: CASE EVENT DATE: 20160717
